FAERS Safety Report 20085568 (Version 1)
Quarter: 2021Q4

REPORT INFORMATION
  Report Type: Spontaneous
  Country: RO (occurrence: RO)
  Receive Date: 20211118
  Receipt Date: 20211118
  Transmission Date: 20220303
  Serious: Yes (Other)
  Sender: FDA-Public Use
  Company Number: RO-SUN PHARMACEUTICAL INDUSTRIES LTD-2021RR-309774

PATIENT
  Age: 28 Year
  Sex: Male

DRUGS (5)
  1. LORAZEPAM [Suspect]
     Active Substance: LORAZEPAM
     Indication: Cerebral atrophy
     Dosage: 2 MILLIGRAM, DAILY
     Route: 065
  2. QUETIAPINE [Suspect]
     Active Substance: QUETIAPINE
     Indication: Cerebral atrophy
     Dosage: 200 MILLIGRAM, DAILY
     Route: 065
  3. ARIPIPRAZOLE [Suspect]
     Active Substance: ARIPIPRAZOLE
     Indication: Cerebral atrophy
     Dosage: 10 MILLIGRAM, DAILY
     Route: 065
  4. CARIPRAZINE [Concomitant]
     Active Substance: CARIPRAZINE
     Dosage: 3 MILLIGRAM, DAILY
     Route: 065
  5. CARIPRAZINE [Concomitant]
     Active Substance: CARIPRAZINE
     Dosage: 1.5 MILLIGRAM
     Route: 065

REACTIONS (2)
  - Therapeutic response unexpected [Unknown]
  - Weight increased [Unknown]
